FAERS Safety Report 6196495-6 (Version None)
Quarter: 2009Q2

REPORT INFORMATION
  Report Type: 
  Country: None (occurrence: None)
  Receive Date: 20090520
  Receipt Date: 20090515
  Transmission Date: 20091009
  Serious: Yes (Other)
  Sender: FDA-Public Use
  Company Number: US-JNJFOC-20060906229

PATIENT
  Sex: Female

DRUGS (2)
  1. RISPERDAL [Suspect]
     Indication: BORDERLINE PERSONALITY DISORDER
  2. RISPERDAL [Suspect]
     Indication: DEPRESSION

REACTIONS (3)
  - DIABETIC GASTROPATHY [None]
  - GASTROINTESTINAL HAEMORRHAGE [None]
  - TYPE 2 DIABETES MELLITUS [None]
